FAERS Safety Report 9792914 (Version 5)
Quarter: 2018Q3

REPORT INFORMATION
  Report Type: Report from Study
  Country: US (occurrence: US)
  Receive Date: 20140102
  Receipt Date: 20180801
  Transmission Date: 20181010
  Serious: No
  Sender: FDA-Public Use
  Company Number: US-SA-2013SA119301

PATIENT
  Age: 57 Year
  Sex: Female

DRUGS (2)
  1. TERIFLUNOMIDE [Suspect]
     Active Substance: TERIFLUNOMIDE
     Dosage: 7 MG, QD
     Route: 048
  2. TERIFLUNOMIDE [Suspect]
     Active Substance: TERIFLUNOMIDE
     Indication: MULTIPLE SCLEROSIS
     Dosage: 14 MG, QD
     Route: 048
     Dates: start: 20121129, end: 2014

REACTIONS (7)
  - Hypoaesthesia [Unknown]
  - Inflammation [Unknown]
  - Hypertension [Recovered/Resolved]
  - Paraesthesia [Unknown]
  - Discomfort [Unknown]
  - Hyperhidrosis [Not Recovered/Not Resolved]
  - Hepatic enzyme increased [Unknown]
